FAERS Safety Report 18381122 (Version 8)
Quarter: 2021Q2

REPORT INFORMATION
  Report Type: Report from Study
  Country: US (occurrence: US)
  Receive Date: 20201014
  Receipt Date: 20210412
  Transmission Date: 20210717
  Serious: Yes (Hospitalization, Other)
  Sender: FDA-Public Use
  Company Number: US-AMRYT PHARMACEUTICALS DAC-AEGR004913

PATIENT
  Age: 21 Year
  Sex: Male
  Weight: 75 kg

DRUGS (31)
  1. PREDNISONE. [Concomitant]
     Active Substance: PREDNISONE
     Dosage: 5 MG, QD
     Dates: start: 20171005, end: 202003
  2. MELATONIN [Concomitant]
     Active Substance: MELATONIN
     Indication: SLEEP DISORDER
     Dosage: 3 MG, QD
     Route: 048
     Dates: start: 2009
  3. FENTANYL. [Concomitant]
     Active Substance: FENTANYL
     Indication: ARTHROSCOPY
     Dosage: 50 ?G, PRN
     Route: 042
     Dates: start: 20161104, end: 20161106
  4. ZYRTEC [Concomitant]
     Active Substance: CETIRIZINE HYDROCHLORIDE
     Indication: PRODUCT USED FOR UNKNOWN INDICATION
     Dosage: 10 MG, CAPSULE
     Route: 048
  5. PROPOFOL. [Concomitant]
     Active Substance: PROPOFOL
     Indication: BIOPSY BONE MARROW
     Dosage: 10 MG/ML, ONCE
     Route: 042
     Dates: start: 20201109, end: 20201109
  6. DIPHENHYDRAMINE. [Concomitant]
     Active Substance: DIPHENHYDRAMINE
     Indication: PRURITUS
     Dosage: 25 MG, PRN
     Route: 042
     Dates: start: 20151104, end: 20151106
  7. PREDNISONE. [Concomitant]
     Active Substance: PREDNISONE
     Indication: VIRAL INFECTION
     Dosage: 5 MG, AS INSTRUCTED
     Route: 048
     Dates: start: 20141230, end: 20150104
  8. PREDNISONE. [Concomitant]
     Active Substance: PREDNISONE
     Dosage: 15 MG, QD
     Route: 048
     Dates: start: 20161014, end: 20171004
  9. ERGOCALCIFEROL. [Concomitant]
     Active Substance: ERGOCALCIFEROL
     Indication: VITAMIN D DEFICIENCY
     Dosage: 1 CAPSULE QW
     Route: 048
     Dates: start: 20170914
  10. COMPAZINE                          /00013302/ [Concomitant]
     Active Substance: PROCHLORPERAZINE EDISYLATE
     Indication: ARTHROSCOPY
     Dosage: 5 MG, PRN
     Route: 042
     Dates: start: 20151104, end: 20151106
  11. CEFAZOLIN [Concomitant]
     Active Substance: CEFAZOLIN
     Indication: ARTHROSCOPY
     Dosage: 2000 MG, QD
     Route: 042
     Dates: start: 20151104, end: 20151104
  12. EPIPEN [Concomitant]
     Active Substance: EPINEPHRINE
     Indication: PRODUCT USED FOR UNKNOWN INDICATION
     Dosage: 0.3 MG/0.3 AUTO INJCT
  13. DIPHENHYDRAMINE. [Concomitant]
     Active Substance: DIPHENHYDRAMINE
     Indication: URTICARIA
     Dosage: 25 MG, PRN
     Route: 048
     Dates: start: 2017
  14. CETRIZINE [Concomitant]
     Active Substance: CETIRIZINE HYDROCHLORIDE
     Indication: URTICARIA
     Dosage: 10 MG, BID
     Route: 048
     Dates: start: 20151113
  15. PREDNISONE. [Concomitant]
     Active Substance: PREDNISONE
     Indication: AUTOIMMUNE HEPATITIS
     Dosage: 10 MG, QD
     Route: 048
     Dates: start: 20150909, end: 20161013
  16. VITAMIN D2 [Concomitant]
     Active Substance: ERGOCALCIFEROL
     Indication: PRODUCT USED FOR UNKNOWN INDICATION
     Dosage: 2000 UNITS, TABLET
     Route: 048
  17. AMIODARONE HCL [Concomitant]
     Active Substance: AMIODARONE HYDROCHLORIDE
     Indication: PRODUCT USED FOR UNKNOWN INDICATION
     Dosage: 100 MG, TABLET
     Route: 048
  18. ZANTAC [Concomitant]
     Active Substance: RANITIDINE HYDROCHLORIDE
     Indication: URTICARIA
     Dosage: 150 MG, PRN
     Route: 048
     Dates: start: 20130913
  19. TAZORAC [Concomitant]
     Active Substance: TAZAROTENE
     Indication: VIRAL SKIN INFECTION
     Dosage: 1 DF, QD
     Route: 061
     Dates: start: 20161014, end: 2016
  20. LIDOCAIN [LIDOCAINE] [Concomitant]
     Active Substance: LIDOCAINE
     Indication: BIOPSY BONE MARROW
     Dosage: 1 DOSE
     Route: 058
     Dates: start: 20201109, end: 20201109
  21. PHENYLEPHRINE [Concomitant]
     Active Substance: PHENYLEPHRINE HYDROCHLORIDE
     Indication: BIOPSY BONE MARROW
     Dosage: 1 MILLIGRAM, ONCE
     Route: 042
     Dates: start: 20201109, end: 20201109
  22. METRELEPTIN [Suspect]
     Active Substance: METRELEPTIN
     Indication: LIPODYSTROPHY ACQUIRED
     Dosage: 2.5 MG, QD
     Route: 058
     Dates: start: 20140905
  23. BACTERIOSTATIC WATER [Concomitant]
     Active Substance: WATER
     Indication: PRODUCT USED FOR UNKNOWN INDICATION
  24. METFORMIN HCL [Concomitant]
     Active Substance: METFORMIN HYDROCHLORIDE
     Indication: PRODUCT USED FOR UNKNOWN INDICATION
     Dosage: 500 MG, TABLET
     Route: 048
  25. EPHEDRINE. [Concomitant]
     Active Substance: EPHEDRINE
     Indication: BIOPSY BONE MARROW
     Dosage: 50 MG/ML, ONCE
     Route: 042
     Dates: start: 20201109, end: 20201109
  26. MIDAZOLAM. [Concomitant]
     Active Substance: MIDAZOLAM
     Indication: BIOPSY BONE MARROW
     Dosage: 1 MG/ML, ONCE
     Route: 042
     Dates: start: 20201109, end: 20201109
  27. ATOMOXETINE. [Concomitant]
     Active Substance: ATOMOXETINE HYDROCHLORIDE
     Indication: ATTENTION DEFICIT HYPERACTIVITY DISORDER
     Dosage: 25 MG, QD
     Route: 048
     Dates: start: 201206, end: 20150920
  28. AZITHROMYCIN ANHYDROUS. [Concomitant]
     Active Substance: AZITHROMYCIN ANHYDROUS
     Indication: VIRAL INFECTION
     Dosage: 1 PACK AS INSTRUCTED
     Route: 048
     Dates: start: 20141230, end: 20150103
  29. MORPHINE [Concomitant]
     Active Substance: MORPHINE
     Indication: ARTHROSCOPY
     Dosage: 1.4 MG, PRN
     Route: 042
     Dates: start: 20151104, end: 20151106
  30. NORCO [Concomitant]
     Active Substance: ACETAMINOPHEN\HYDROCODONE BITARTRATE
     Indication: ARTHROSCOPY
     Dosage: 5?325 MG, PRN
     Route: 048
     Dates: start: 20151104, end: 20161104
  31. SULFAMETHOXAZOLE W/TRIMETHOPRIM [Concomitant]
     Active Substance: SULFAMETHOXAZOLE\TRIMETHOPRIM
     Indication: PLATELET COUNT DECREASED
     Dosage: 1 DOSAGE FORM 3 DAYS A WEEK
     Route: 048
     Dates: start: 20200807

REACTIONS (14)
  - Type 1 diabetes mellitus [Not Recovered/Not Resolved]
  - Adrenal insufficiency [Not Recovered/Not Resolved]
  - Zinc deficiency [Not Recovered/Not Resolved]
  - Hepatic encephalopathy [Unknown]
  - Haematemesis [Recovered/Resolved]
  - Haematemesis [Recovered/Resolved]
  - Gastrointestinal haemorrhage [Unknown]
  - Gastric varices [Unknown]
  - Pancytopenia [Not Recovered/Not Resolved]
  - Hospitalisation [Unknown]
  - Vomiting [Recovered/Resolved]
  - Anaemia [Recovered/Resolved]
  - Mental status changes [Recovered/Resolved]
  - Gastrointestinal haemorrhage [Recovered/Resolved]

NARRATIVE: CASE EVENT DATE: 2020
